FAERS Safety Report 6103947-3 (Version None)
Quarter: 2009Q1

REPORT INFORMATION
  Report Type: 
  Country: None (occurrence: None)
  Receive Date: 20090305
  Receipt Date: 20090302
  Transmission Date: 20090719
  Serious: Yes (Hospitalization)
  Sender: FDA-Public Use
  Company Number: B0558460A

PATIENT
  Age: 6 Year

DRUGS (9)
  1. RELENZA [Suspect]
     Indication: INFLUENZA
     Dosage: 10MG TWICE PER DAY
     Route: 055
     Dates: start: 20090131
  2. TACROLIMUS HYDRATE [Suspect]
     Indication: DRUG USE FOR UNKNOWN INDICATION
     Route: 065
  3. PROGRAF [Concomitant]
     Dosage: 3MG PER DAY
     Route: 048
     Dates: end: 20090204
  4. PROGRAF [Concomitant]
     Dosage: 2.5MG PER DAY
     Route: 048
     Dates: start: 20090205, end: 20090206
  5. PROGRAF [Concomitant]
     Dosage: 1MG PER DAY
     Route: 048
     Dates: start: 20090207
  6. PREDNISOLONE [Concomitant]
     Dosage: 30MG PER DAY
     Route: 048
     Dates: end: 20090205
  7. PREDNISOLONE [Concomitant]
     Route: 048
     Dates: start: 20090206, end: 20090210
  8. PREDNISOLONE [Concomitant]
     Dosage: 5MG PER DAY
     Route: 048
     Dates: start: 20090210
  9. CELLCEPT [Concomitant]
     Dosage: 500MG PER DAY
     Route: 048

REACTIONS (1)
  - DRUG INTERACTION [None]
